FAERS Safety Report 19904728 (Version 1)
Quarter: 2021Q3

REPORT INFORMATION
  Report Type: Spontaneous
  Country: NL (occurrence: NL)
  Receive Date: 20210930
  Receipt Date: 20210930
  Transmission Date: 20211014
  Serious: Yes (Other)
  Sender: FDA-Public Use
  Company Number: NL-TEVA-2021-NL-1958000

PATIENT
  Sex: Male

DRUGS (4)
  1. PANTOPRAZOL TABLET MSR 40MG / PANTOPRAZOL 1A PHARMA TABLET MSR 40MG [Suspect]
     Active Substance: PANTOPRAZOLE
     Indication: PRODUCT USED FOR UNKNOWN INDICATION
     Dosage: 40 MILLIGRAM DAILY;  THERAPY END DATE :ASKU
     Dates: start: 2000
  2. SIMVASTATINE TABLET FO 40MG / SIMVASTATINE SANDOZ TABLET FILMOMHULD 40 [Suspect]
     Active Substance: SIMVASTATIN
     Indication: PRODUCT USED FOR UNKNOWN INDICATION
     Dosage: 40 MILLIGRAM DAILY;  THERAPY END DATE:ASKU
     Dates: start: 2000
  3. SILDENAFIL TABLET 100MG / BRAND NAME NOT SPECIFIED [Suspect]
     Active Substance: SILDENAFIL
     Indication: PRODUCT USED FOR UNKNOWN INDICATION
     Dosage: 100 MG  ,THERAPY END DATE :ASKU
     Dates: start: 2016
  4. ACETYLSALICYLZUUR DISPERTABLET 80MG / ACETYLSALICYLZUUR CARDIO MYLAN D [Suspect]
     Active Substance: ASPIRIN
     Indication: TRANSIENT ISCHAEMIC ATTACK
     Dosage: 40 MILLIGRAM DAILY;  THERAPY END DATE :ASKU
     Dates: start: 2000

REACTIONS (1)
  - Erectile dysfunction [Unknown]

NARRATIVE: CASE EVENT DATE: 2021
